FAERS Safety Report 5294710-4 (Version None)
Quarter: 2007Q2

REPORT INFORMATION
  Report Type: 
  Country: None (occurrence: None)
  Receive Date: 20070406
  Receipt Date: 20070328
  Transmission Date: 20071010
  Serious: Yes (Other)
  Sender: FDA-Public Use
  Company Number: 16109

PATIENT
  Age: 60 Year

DRUGS (7)
  1. PACLITAXEL [Suspect]
     Indication: TRANSITIONAL CELL CARCINOMA
     Dosage: 110 MG/M2 PER_CYCLE IV
     Route: 042
  2. PACLITAXEL [Suspect]
     Indication: TRANSITIONAL CELL CARCINOMA
     Dosage: 90 MG/M2 PER_CYCLE IV
     Route: 042
  3. GEMCITABINE HCL [Suspect]
     Indication: TRANSITIONAL CELL CARCINOMA
     Dosage: 1000 MG/M2 PER_CYCLE IV
     Route: 042
  4. GEMCITABINE HCL [Suspect]
     Indication: TRANSITIONAL CELL CARCINOMA
     Dosage: 800 MG/M2 PER_CYCLE IV
     Route: 042
  5. DEXAMETHASONE 0.5MG TAB [Concomitant]
  6. DIPHENHYDRAMINE HCL [Concomitant]
  7. H2 BLOCKER [Concomitant]

REACTIONS (3)
  - DYSPNOEA [None]
  - PULMONARY OEDEMA [None]
  - PULMONARY TOXICITY [None]
